FAERS Safety Report 6816535-8 (Version None)
Quarter: 2010Q3

REPORT INFORMATION
  Report Type: 
  Country: None (occurrence: None)
  Receive Date: 20100706
  Receipt Date: 20100623
  Transmission Date: 20110219
  Serious: Yes (Other)
  Sender: FDA-Public Use
  Company Number: PHHY2010IT38926

PATIENT
  Sex: Female

DRUGS (2)
  1. COTAREG [Suspect]
     Indication: HYPERTENSION
     Dosage: 80 MG, QD
     Route: 048
     Dates: start: 20091120, end: 20091126
  2. COTAREG [Suspect]
     Indication: ATRIAL FIBRILLATION

REACTIONS (2)
  - PRURITUS [None]
  - RESPIRATORY FAILURE [None]
